FAERS Safety Report 6216585-9 (Version None)
Quarter: 2009Q2

REPORT INFORMATION
  Report Type: 
  Country: None (occurrence: None)
  Receive Date: 20090605
  Receipt Date: 20090527
  Transmission Date: 20091009
  Serious: No
  Sender: FDA-Public Use
  Company Number: B0575896A

PATIENT
  Sex: Female

DRUGS (5)
  1. RELENZA [Suspect]
     Indication: INFLUENZA
     Dosage: 25MG PER DAY
     Route: 055
     Dates: start: 20090522, end: 20090522
  2. RELENZA [Suspect]
     Dosage: 10MG TWICE PER DAY
     Route: 055
     Dates: start: 20090523
  3. NAUZELIN [Concomitant]
     Indication: NAUSEA
     Dosage: 30MG PER DAY
     Route: 048
     Dates: start: 20090522
  4. HOKUNALIN [Concomitant]
     Indication: COUGH
     Dosage: 1MG PER DAY
     Route: 062
     Dates: start: 20090519
  5. LOXONIN [Concomitant]
     Indication: INFLAMMATION
     Dosage: 180MG PER DAY
     Route: 048
     Dates: start: 20090519, end: 20090522

REACTIONS (1)
  - OVERDOSE [None]
